FAERS Safety Report 15334280 (Version 1)
Quarter: 2018Q3

REPORT INFORMATION
  Report Type: Spontaneous
  Country: US (occurrence: US)
  Receive Date: 20180830
  Receipt Date: 20180830
  Transmission Date: 20181010
  Serious: No
  Sender: FDA-Public Use
  Company Number: US-PFIZER INC-2016545612

PATIENT
  Age: 55 Year
  Sex: Female
  Weight: 104 kg

DRUGS (20)
  1. LISINOPRIL + HIDROCLOROTIAZIDA [Concomitant]
     Active Substance: HYDROCHLOROTHIAZIDE\LISINOPRIL
     Indication: BLOOD PRESSURE MEASUREMENT
     Dosage: 1 DF, 1X/DAY (LISINOPRIL 20 MG?HYDROCHLOROTHIAZIDE 25 MG)
     Route: 048
     Dates: start: 20151109
  2. AMITIZA [Concomitant]
     Active Substance: LUBIPROSTONE
     Dosage: 8 UG, 2X/DAY
     Route: 048
     Dates: start: 20161117
  3. TENS [Concomitant]
     Indication: ARTHROPATHY
  4. ALEVE [Concomitant]
     Active Substance: NAPROXEN SODIUM
     Dosage: 220 MG, AS NEEDED
     Route: 048
     Dates: start: 20130115
  5. B COMPLETE [VITAMIN B COMPLEX] [Concomitant]
     Dosage: 1 DF, DAILY
     Dates: start: 20140623
  6. MIRALAX [Concomitant]
     Active Substance: POLYETHYLENE GLYCOL 3350
     Dosage: UNK  (DIRECTED1/2 CAPFUL TO A CAPFUL EVERY OTHER DAY TO EVERY DAY)
     Dates: start: 20150817
  7. LACTULOSE. [Concomitant]
     Active Substance: LACTULOSE
     Indication: ABNORMAL FAECES
     Dosage: 15 ML, 1X/DAY
     Route: 048
     Dates: start: 20161117
  8. OPANA [Concomitant]
     Active Substance: OXYMORPHONE HYDROCHLORIDE
     Dosage: 20 MG, 2X/DAY
     Route: 048
     Dates: start: 20141022
  9. MOVANTIK [Concomitant]
     Active Substance: NALOXEGOL OXALATE
     Dosage: 25 MG, 1X/DAY
     Route: 048
     Dates: start: 20161117
  10. NORVASC [Concomitant]
     Active Substance: AMLODIPINE BESYLATE
     Indication: BLOOD PRESSURE MEASUREMENT
     Dosage: 5 MG, 1X/DAY
     Route: 048
     Dates: start: 20160916
  11. MOTRIN IB [Concomitant]
     Active Substance: IBUPROFEN
     Dosage: 200 MG, AS NEEDED
     Route: 048
     Dates: start: 20130115
  12. PERCOCET [OXYCODONE HYDROCHLORIDE;PARACETAMOL] [Concomitant]
     Indication: BREAKTHROUGH PAIN
     Dosage: 1 DF, AS NEEDED [BID (OXYCODONE 10 MG?ACETAMINOPHEN 325 MG)]
     Route: 048
     Dates: start: 20140422
  13. EQUATE ALLERGY RELIEF [CETIRIZINE HYDROCHLORIDE] [Concomitant]
     Dosage: UNK
     Dates: start: 20140303
  14. LEVOXYL [Concomitant]
     Active Substance: LEVOTHYROXINE SODIUM
     Indication: THYROID DISORDER
     Dosage: 137 UG, 1X/DAY
     Route: 048
     Dates: start: 20130115
  15. ROBAXIN?750 [Concomitant]
     Indication: MUSCLE SPASMS
     Dosage: 750 MG, 3X/DAY
     Route: 048
     Dates: start: 20141208
  16. TENS [Concomitant]
     Indication: SPINAL OSTEOARTHRITIS
     Dosage: UNK
     Dates: start: 20140422
  17. TRAZODONE HYDROCHLORIDE. [Concomitant]
     Active Substance: TRAZODONE HYDROCHLORIDE
     Indication: SLEEP DISORDER
     Dosage: 50 MG, AS NEEDED (AT BEDTIME)
     Route: 048
     Dates: start: 20130115
  18. LYRICA [Suspect]
     Active Substance: PREGABALIN
     Indication: NEURALGIA
     Dosage: 100 MG, 2X/DAY
     Route: 048
     Dates: start: 20160503
  19. ALBUTEROL SULFATE. [Concomitant]
     Active Substance: ALBUTEROL SULFATE
     Dosage: UNK
     Dates: start: 20130115
  20. VENTOLIN HFA [Concomitant]
     Active Substance: ALBUTEROL SULFATE
     Dosage: UNK (108 MCG OF ALBUTEROL SULFATE/ OF ALBUTEROL BASE: 90 MCG)
     Dates: start: 20130115

REACTIONS (1)
  - Pain [Unknown]

NARRATIVE: CASE EVENT DATE: 201808
